FAERS Safety Report 5215164-X (Version None)
Quarter: 2007Q1

REPORT INFORMATION
  Report Type: 
  Country: None (occurrence: None)
  Receive Date: 20070122
  Receipt Date: 20070115
  Transmission Date: 20070707
  Serious: Yes (Hospitalization)
  Sender: FDA-Public Use
  Company Number: FR-PFIZER INC-2007003881

PATIENT
  Age: 53 Year
  Sex: Female

DRUGS (3)
  1. TAHOR [Suspect]
     Route: 048
  2. METRONIDAZOLE [Suspect]
     Route: 048
     Dates: start: 20061120, end: 20061124
  3. ALPRAZOLAM [Concomitant]
     Route: 048
     Dates: start: 20061123, end: 20061123

REACTIONS (4)
  - ANGIOEDEMA [None]
  - DYSPNOEA [None]
  - ERYTHEMA MULTIFORME [None]
  - PRURITUS [None]
